FAERS Safety Report 10585736 (Version 1)
Quarter: 2014Q4

REPORT INFORMATION
  Report Type: Spontaneous
  Country: AU (occurrence: AU)
  Receive Date: 20141114
  Receipt Date: 20141114
  Transmission Date: 20150529
  Serious: Yes (Other)
  Sender: FDA-Public Use
  Company Number: AU-WATSON-2014-24333

PATIENT
  Age: 13 Year
  Sex: Male

DRUGS (1)
  1. ISOFLURANE (UNKNOWN) [Suspect]
     Active Substance: ISOFLURANE
     Indication: ANAESTHESIA
     Dosage: UNK
     Route: 065
     Dates: start: 2005

REACTIONS (1)
  - Hyperthermia malignant [Recovered/Resolved]

NARRATIVE: CASE EVENT DATE: 2005
